FAERS Safety Report 9177329 (Version 1)
Quarter: 2013Q1

REPORT INFORMATION
  Report Type: Spontaneous
  Country: CA (occurrence: CA)
  Receive Date: 20130321
  Receipt Date: 20130321
  Transmission Date: 20140127
  Serious: Yes (Other)
  Sender: FDA-Public Use
  Company Number: CA-PFIZER INC-2013088549

PATIENT
  Sex: Male

DRUGS (2)
  1. ANIDULAFUNGIN [Suspect]
     Indication: CANDIDA INFECTION
     Route: 042
  2. VFEND [Suspect]
     Indication: CANDIDA INFECTION
     Dosage: 200 MG, 2X/DAY
     Route: 048

REACTIONS (2)
  - Cholestasis [Not Recovered/Not Resolved]
  - Nephrolithiasis [Not Recovered/Not Resolved]
